FAERS Safety Report 18447833 (Version 1)
Quarter: 2020Q4

REPORT INFORMATION
  Report Type: Spontaneous
  Country: US (occurrence: US)
  Receive Date: 20201031
  Receipt Date: 20201031
  Transmission Date: 20210114
  Serious: Yes (Hospitalization, Other)
  Sender: FDA-Public Use
  Company Number: US-SCIEGEN-2020SCILIT00070

PATIENT
  Age: 14 Year
  Sex: Male

DRUGS (5)
  1. CITALOPRAM [Concomitant]
     Active Substance: CITALOPRAM HYDROBROMIDE
     Indication: ANXIETY
     Route: 065
  2. ACTIVATED CHARCOAL. [Interacting]
     Active Substance: ACTIVATED CHARCOAL
     Indication: OVERDOSE
     Route: 065
  3. CITALOPRAM [Concomitant]
     Active Substance: CITALOPRAM HYDROBROMIDE
     Indication: DEPRESSION
  4. ARIPIPRAZOLE. [Suspect]
     Active Substance: ARIPIPRAZOLE
     Indication: NERVOUSNESS
     Route: 048
  5. SODIUM BICARBONATE. [Interacting]
     Active Substance: SODIUM BICARBONATE
     Indication: OVERDOSE
     Route: 040

REACTIONS (11)
  - Electrocardiogram QT interval [Unknown]
  - Somnolence [Unknown]
  - Electrocardiogram QRS complex prolonged [Recovered/Resolved]
  - Oromandibular dystonia [Recovered/Resolved]
  - Overdose [Unknown]
  - Bundle branch block left [Unknown]
  - Hypocalcaemia [Unknown]
  - Hypokalaemia [Unknown]
  - Intentional product misuse [Unknown]
  - Sinus tachycardia [Unknown]
  - Hypomagnesaemia [Unknown]
